FAERS Safety Report 12787303 (Version 2)
Quarter: 2016Q4

REPORT INFORMATION
  Report Type: Spontaneous
  Country: US (occurrence: US)
  Receive Date: 20160928
  Receipt Date: 20161024
  Transmission Date: 20170207
  Serious: No
  Sender: FDA-Public Use
  Company Number: US-PFIZER INC-2016448178

PATIENT
  Age: 51 Year
  Sex: Female

DRUGS (19)
  1. VITAMIN D3 [Concomitant]
     Active Substance: CHOLECALCIFEROL
     Dosage: 1000 MG, 1X/DAY (EVERY MORNING)
     Route: 048
  2. NITROSTAT [Concomitant]
     Active Substance: NITROGLYCERIN
     Indication: CHEST PAIN
     Dosage: 0.4 MG, AS NEEDED (UNDER THE TONGUE EVERY 5 (FIVE) MINUTES)
     Route: 060
  3. ENTRESTO [Concomitant]
     Active Substance: SACUBITRIL\VALSARTAN
     Dosage: 1 DF, 2X/DAY [SACUBITRIL: 24 MG]/ [VALSARTAN: 26 MG]
     Route: 048
  4. ALDACTONE [Concomitant]
     Active Substance: SPIRONOLACTONE
     Dosage: 25 MG, DAILY
     Route: 048
  5. LIPITOR [Concomitant]
     Active Substance: ATORVASTATIN CALCIUM
     Dosage: 40 MG, 1X/DAY (NIGHTLY)
     Route: 048
  6. NORCO [Concomitant]
     Active Substance: ACETAMINOPHEN\HYDROCODONE BITARTRATE
     Indication: PAIN
     Dosage: 1 DF, AS NEEDED  [HYDROCODONE: 5 MG] / [ACETAMINOPHEN: 325 MG] (EVERY 6 (SIX) HOURS)
     Route: 048
  7. MAG-OX [Concomitant]
     Active Substance: MAGNESIUM OXIDE
     Dosage: 400 MG, 2X/DAY
     Route: 048
  8. MIDAZOLAM [Suspect]
     Active Substance: MIDAZOLAM\MIDAZOLAM HYDROCHLORIDE
     Dosage: UNK
  9. XANAX [Concomitant]
     Active Substance: ALPRAZOLAM
     Indication: ANXIETY
     Dosage: UNK, AS NEEDED (TAKE 0.5-1 MG BY MOUTH DAILY)
     Route: 048
  10. UBIDECARENONE [Concomitant]
     Active Substance: UBIDECARENONE
     Dosage: 1 DF, 1X/DAY (EVERY MORNING)
     Route: 048
  11. TOPROL XL [Concomitant]
     Active Substance: METOPROLOL SUCCINATE
     Dosage: 50 MG, DAILY (HOLD FOR SBP LESS THAN 90 OR HR LESS THAN 60 )
     Route: 048
  12. TYLENOL [Concomitant]
     Active Substance: ACETAMINOPHEN
     Indication: PAIN
     Dosage: 325 MG, AS NEEDED
     Route: 048
  13. ASPIRIN. [Concomitant]
     Active Substance: ASPIRIN
     Dosage: 81 MG, 1X/DAY (EVERY EVENING)
     Route: 048
  14. LEXAPRO [Concomitant]
     Active Substance: ESCITALOPRAM OXALATE
     Dosage: 20 MG, 1X/DAY (EVERY MORNING)
     Route: 048
  15. PLAVIX [Concomitant]
     Active Substance: CLOPIDOGREL BISULFATE
     Dosage: 75 MG, DAILY
     Route: 048
  16. THERAGRAN [Concomitant]
     Active Substance: VITAMINS
     Dosage: 1 DF, 1X/DAY (EVERY MORNING)
     Route: 048
  17. ALDACTONE [Concomitant]
     Active Substance: SPIRONOLACTONE
     Dosage: UNK UNK, DAILY (TAKES 1/2 TABLET)
  18. VALIUM [Concomitant]
     Active Substance: DIAZEPAM
     Dosage: 2 MG, 1X/DAY (NIGHTLY)
     Route: 048
  19. VALTREX [Concomitant]
     Active Substance: VALACYCLOVIR HYDROCHLORIDE
     Dosage: 500 MG, 1X/DAY (EVERY MORNING)
     Route: 048

REACTIONS (3)
  - Drug hypersensitivity [Unknown]
  - Amnesia [Unknown]
  - Drug intolerance [Unknown]
